FAERS Safety Report 9816079 (Version 1)
Quarter: 2014Q1

REPORT INFORMATION
  Report Type: Report from Study
  Country: US (occurrence: US)
  Receive Date: 20140114
  Receipt Date: 20140114
  Transmission Date: 20141002
  Serious: Yes (Hospitalization)
  Sender: FDA-Public Use
  Company Number: US-PURDUE-USA-2014-0110238

PATIENT
  Sex: Female

DRUGS (1)
  1. OXY CR TAB [Suspect]
     Indication: NECK PAIN
     Dosage: 80 MG, TID
     Route: 048

REACTIONS (4)
  - Cellulitis [Unknown]
  - Drug tolerance [Unknown]
  - Fatigue [Unknown]
  - Pain [Unknown]
